FAERS Safety Report 21387009 (Version 2)
Quarter: 2024Q2

REPORT INFORMATION
  Report Type: Report from Study
  Country: CO (occurrence: CO)
  Receive Date: 20220928
  Receipt Date: 20240613
  Transmission Date: 20240716
  Serious: Yes (Other)
  Sender: FDA-Public Use
  Company Number: CO-ABBVIE-22K-036-4231625-00

PATIENT
  Sex: Female
  Weight: 74 kg

DRUGS (2)
  1. HUMIRA [Suspect]
     Active Substance: ADALIMUMAB
     Indication: Uveitis
     Dosage: 1 DAYS
     Route: 058
     Dates: start: 20200313, end: 20220607
  2. VITAMIN C [Concomitant]
     Active Substance: ASCORBIC ACID
     Indication: Cough
     Route: 048

REACTIONS (11)
  - Hysterectomy [Recovering/Resolving]
  - Headache [Recovered/Resolved]
  - Dysphonia [Recovered/Resolved]
  - Rheumatic disorder [Recovering/Resolving]
  - Influenza [Recovering/Resolving]
  - Productive cough [Recovered/Resolved]
  - Rhinalgia [Recovering/Resolving]
  - Throat irritation [Recovering/Resolving]
  - Discomfort [Recovering/Resolving]
  - Oropharyngeal discomfort [Recovering/Resolving]
  - Dysphonia [Recovering/Resolving]

NARRATIVE: CASE EVENT DATE: 20220101
